FAERS Safety Report 24528484 (Version 1)
Quarter: 2024Q4

REPORT INFORMATION
  Report Type: Spontaneous
  Country: JP (occurrence: JP)
  Receive Date: 20241021
  Receipt Date: 20241021
  Transmission Date: 20250115
  Serious: Yes (Other)
  Sender: PFIZER
  Company Number: JP-PFIZER INC-PV202400134181

PATIENT
  Age: 27 Year
  Sex: Male

DRUGS (2)
  1. VORICONAZOLE [Suspect]
     Active Substance: VORICONAZOLE
     Indication: Antifungal prophylaxis
     Dosage: UNK
     Route: 048
  2. CYCLOSPORINE [Concomitant]
     Active Substance: CYCLOSPORINE
     Indication: Chronic graft versus host disease
     Dosage: UNK
     Route: 048

REACTIONS (7)
  - Squamous cell carcinoma of skin [Unknown]
  - Sebaceous carcinoma [Unknown]
  - Bowen^s disease [Unknown]
  - Actinic keratosis [Unknown]
  - Photosensitivity reaction [Unknown]
  - Off label use [Unknown]
  - Product use issue [Unknown]
